FAERS Safety Report 4697255-5 (Version None)
Quarter: 2005Q2

REPORT INFORMATION
  Report Type: 
  Country: None (occurrence: None)
  Receive Date: 20050622
  Receipt Date: 20050426
  Transmission Date: 20051028
  Serious: Yes (Death, Hospitalization)
  Sender: FDA-Public Use
  Company Number: TW-BRISTOL-MYERS SQUIBB COMPANY-12947016

PATIENT
  Age: 47 Year
  Sex: Male
  Weight: 41 kg

DRUGS (7)
  1. CISPLATIN [Suspect]
     Indication: GASTRIC CANCER
     Dosage: START DATE:  27-JAN-2005
     Route: 042
     Dates: start: 20050219, end: 20050219
  2. ALIMTA [Suspect]
     Indication: GASTRIC CANCER
     Dosage: START DATE:  27-JAN-2005
     Route: 042
     Dates: start: 20050219, end: 20050219
  3. VITAMIN B-12 [Concomitant]
     Indication: PROPHYLAXIS
     Dates: start: 20050121, end: 20050121
  4. STRESSTABS [Concomitant]
     Indication: PROPHYLAXIS
     Dates: start: 20050121
  5. MEDROXYPROGESTERONE [Concomitant]
     Indication: ANOREXIA
     Dates: start: 20050304
  6. FOLIC ACID [Concomitant]
  7. DEXAMETHASONE [Concomitant]

REACTIONS (5)
  - DELIRIUM [None]
  - HEPATIC FAILURE [None]
  - HEPATITIS ACUTE [None]
  - HEPATITIS B [None]
  - HEPATITIS C [None]
